FAERS Safety Report 9989137 (Version 2)
Quarter: 2014Q1

REPORT INFORMATION
  Report Type: Report from Study
  Country: US (occurrence: US)
  Receive Date: 20140310
  Receipt Date: 20140310
  Transmission Date: 20141002
  Serious: No
  Sender: FDA-Public Use
  Company Number: US-ABBVIE-13P-163-1050437-00

PATIENT
  Age: 33 Year
  Sex: Female

DRUGS (6)
  1. CONTRACEPTIVES [Concomitant]
     Indication: CONTRACEPTION
  2. MULTIVITAMIN [Concomitant]
     Indication: PRODUCT USED FOR UNKNOWN INDICATION
  3. HUMIRA [Suspect]
     Indication: CROHN^S DISEASE
     Dosage: LOADING DOSE
     Dates: start: 20130206, end: 20130206
  4. HUMIRA [Suspect]
  5. ASACOL [Concomitant]
     Indication: CROHN^S DISEASE
  6. ATIVAN [Concomitant]
     Indication: ANXIETY

REACTIONS (3)
  - Injection site pain [Recovered/Resolved]
  - Incorrect dose administered [Unknown]
  - Wrong technique in drug usage process [Unknown]
